FAERS Safety Report 9231857 (Version 2)
Quarter: 2013Q2

REPORT INFORMATION
  Report Type: Report from Study
  Country: US (occurrence: US)
  Receive Date: 20130415
  Receipt Date: 20130426
  Transmission Date: 20140414
  Serious: Yes (Other)
  Sender: FDA-Public Use
  Company Number: US-ABBOTT-13P-163-1073557-00

PATIENT
  Age: 55 Year
  Sex: Female
  Weight: 70.37 kg

DRUGS (13)
  1. HUMIRA [Suspect]
     Indication: RHEUMATOID ARTHRITIS
     Dates: start: 20121109
  2. ATACAND [Concomitant]
     Indication: HYPERTENSION
  3. LASIX [Concomitant]
     Indication: FLUID RETENTION
  4. CELEBREX [Concomitant]
     Indication: PAIN
  5. TOPAMAX [Concomitant]
     Indication: NECK PAIN
  6. TOPAMAX [Concomitant]
     Indication: HEADACHE
  7. PRILOSEC [Concomitant]
     Indication: GASTROOESOPHAGEAL REFLUX DISEASE
  8. XOPENEX [Concomitant]
     Indication: ASTHMA
     Dosage: INHALER
  9. MULTIVITAMIN [Concomitant]
     Indication: VITAMIN SUPPLEMENTATION
  10. LIDODERM [Concomitant]
     Indication: PAIN
     Dosage: PATCH
  11. EPINEPHRINE MINIJET [Concomitant]
     Indication: ALLERGY TO ARTHROPOD STING
  12. BIOTIN [Concomitant]
     Indication: ALOPECIA
  13. ROGAINE [Concomitant]
     Indication: ALOPECIA

REACTIONS (8)
  - Systemic lupus erythematosus [Recovered/Resolved]
  - Rash [Not Recovered/Not Resolved]
  - Keratosis pilaris [Not Recovered/Not Resolved]
  - Neurodermatitis [Unknown]
  - Asthenia [Not Recovered/Not Resolved]
  - Somnolence [Not Recovered/Not Resolved]
  - Feeling abnormal [Not Recovered/Not Resolved]
  - Rash [Unknown]
